FAERS Safety Report 13825631 (Version 1)
Quarter: 2017Q3

REPORT INFORMATION
  Report Type: Spontaneous
  Country: None (occurrence: US)
  Receive Date: 20170802
  Receipt Date: 20170802
  Transmission Date: 20171127
  Serious: Yes (Disabling)
  Sender: FDA-Public Use
  Company Number: US-ALVA-AMCO PHARMACAL COMPANIES, INC.-2024074

PATIENT
  Sex: Male
  Weight: 130.91 kg

DRUGS (1)
  1. FUNGICURE MAXIMUM STRENGTH [Suspect]
     Active Substance: UNDECYLENIC ACID
     Indication: FUNGAL SKIN INFECTION
     Route: 061
     Dates: start: 201610

REACTIONS (1)
  - Pain [Recovering/Resolving]

NARRATIVE: CASE EVENT DATE: 201704
